FAERS Safety Report 16449381 (Version 1)
Quarter: 2019Q2

REPORT INFORMATION
  Report Type: Spontaneous
  Country: US (occurrence: US)
  Receive Date: 20190619
  Receipt Date: 20190619
  Transmission Date: 20190711
  Serious: Yes (Other)
  Sender: FDA-Public Use
  Company Number: US-HORIZON-ACT-0173-2019

PATIENT
  Age: 7 Year
  Sex: Male

DRUGS (1)
  1. ACTIMMUNE [Suspect]
     Active Substance: INTERFERON GAMMA-1B
     Indication: CHRONIC GRANULOMATOUS DISEASE
     Dosage: THREE TIMES A WEEK
     Dates: start: 2012

REACTIONS (2)
  - Pruritus [Not Recovered/Not Resolved]
  - Liver injury [Not Recovered/Not Resolved]
